FAERS Safety Report 8507068-1 (Version None)
Quarter: 2012Q3

REPORT INFORMATION
  Report Type: 
  Country: None (occurrence: None)
  Receive Date: 20120712
  Receipt Date: 20120709
  Transmission Date: 20120928
  Serious: Yes (Death, Other)
  Sender: FDA-Public Use
  Company Number: US-BAYER-2012-068512

PATIENT
  Age: 72 Year
  Sex: Female

DRUGS (1)
  1. BETASERON [Suspect]
     Indication: MULTIPLE SCLEROSIS
     Dosage: 8 MIU, QOD
     Route: 058
     Dates: start: 20080126, end: 20120401

REACTIONS (4)
  - MULTIPLE SCLEROSIS [None]
  - CEREBROVASCULAR ACCIDENT [None]
  - VITAL FUNCTIONS ABNORMAL [None]
  - DEATH [None]
